FAERS Safety Report 16641958 (Version 1)
Quarter: 2019Q3

REPORT INFORMATION
  Report Type: Spontaneous
  Country: FR (occurrence: FR)
  Receive Date: 20190729
  Receipt Date: 20190729
  Transmission Date: 20191004
  Serious: Yes (Hospitalization)
  Sender: FDA-Public Use
  Company Number: FR-PFIZER INC-2019314332

PATIENT
  Age: 14 Year
  Sex: Female

DRUGS (4)
  1. CANNABIS [Suspect]
     Active Substance: CANNABIS SATIVA SUBSP. INDICA TOP
     Indication: SUBSTANCE USE
     Dosage: UNK
     Route: 055
     Dates: start: 2018
  2. COCAINE [Suspect]
     Active Substance: COCAINE
     Indication: SUBSTANCE USE
     Dosage: UNK
     Route: 045
     Dates: start: 2018
  3. METHYLENEDIOXYMETHAMPHETAMINE [Suspect]
     Active Substance: MIDOMAFETAMINE
     Indication: SUBSTANCE USE
     Dosage: UNK
     Route: 048
     Dates: start: 2018
  4. PREGABALINE PFIZER [Suspect]
     Active Substance: PREGABALIN
     Indication: SUBSTANCE USE
     Dosage: UNK
     Route: 048
     Dates: start: 2018

REACTIONS (1)
  - Substance dependence [Not Recovered/Not Resolved]

NARRATIVE: CASE EVENT DATE: 2018
